FAERS Safety Report 8206928-9 (Version None)
Quarter: 2012Q1

REPORT INFORMATION
  Report Type: 
  Country: None (occurrence: None)
  Receive Date: 20120314
  Receipt Date: 20120307
  Transmission Date: 20120608
  Serious: Yes (Hospitalization)
  Sender: FDA-Public Use
  Company Number: US-AMGEN-USASP2012014883

PATIENT
  Age: 34 Year
  Sex: Female

DRUGS (3)
  1. EPOGEN [Suspect]
     Dosage: 30000 IU, QWK
     Dates: start: 20111101
  2. EPOGEN [Suspect]
     Dosage: 30000 IU, QWK
     Dates: start: 20120116
  3. EPOGEN [Suspect]
     Indication: PRODUCT USED FOR UNKNOWN INDICATION
     Dosage: 10000 IU/ML, 3 TIMES/WK

REACTIONS (1)
  - ANAEMIA [None]
